FAERS Safety Report 15319168 (Version 1)
Quarter: 2018Q3

REPORT INFORMATION
  Report Type: Spontaneous
  Country: US (occurrence: US)
  Receive Date: 20180820
  Receipt Date: 20180820
  Transmission Date: 20181010
  Serious: Yes (Life-Threatening, Hospitalization, Disabling)
  Sender: FDA-Public Use
  Company Number: None

PATIENT
  Age: 25 Year
  Sex: Female
  Weight: 60.3 kg

DRUGS (1)
  1. AZURETTE [Suspect]
     Active Substance: DESOGESTREL\ETHINYL ESTRADIOL
     Indication: CONTRACEPTION
     Route: 048
     Dates: start: 20150307, end: 20180304

REACTIONS (6)
  - Impaired work ability [None]
  - Dizziness [None]
  - Syncope [None]
  - Hypertension [None]
  - Headache [None]
  - Migraine [None]

NARRATIVE: CASE EVENT DATE: 20180304
